FAERS Safety Report 25024157 (Version 1)
Quarter: 2025Q1

REPORT INFORMATION
  Report Type: Spontaneous
  Country: US (occurrence: None)
  Receive Date: 20250228
  Receipt Date: 20250228
  Transmission Date: 20250409
  Serious: Yes (Hospitalization)
  Sender: FDA-CTU
  Company Number: None

PATIENT
  Age: 72 Year
  Sex: Male

DRUGS (1)
  1. MORPHINE SULFATE [Suspect]
     Active Substance: MORPHINE SULFATE
     Indication: Pain

REACTIONS (4)
  - Respiratory depression [None]
  - Loss of consciousness [None]
  - Head injury [None]
  - Pulse absent [None]

NARRATIVE: CASE EVENT DATE: 20250120
